FAERS Safety Report 16098457 (Version 1)
Quarter: 2019Q1

REPORT INFORMATION
  Report Type: Report from Study
  Country: US (occurrence: US)
  Receive Date: 20190321
  Receipt Date: 20190321
  Transmission Date: 20190418
  Serious: No
  Sender: FDA-Public Use
  Company Number: US-ROCHE-2285437

PATIENT
  Age: 50 Year
  Sex: Female
  Weight: 162.99 kg

DRUGS (1)
  1. OCREVUS [Suspect]
     Active Substance: OCRELIZUMAB
     Indication: RELAPSING MULTIPLE SCLEROSIS
     Route: 042
     Dates: start: 20180829

REACTIONS (6)
  - Pyrexia [Recovered/Resolved]
  - Blood glucose increased [Unknown]
  - Urinary tract infection [Recovered/Resolved]
  - Vaginal lesion [Not Recovered/Not Resolved]
  - Blood calcium increased [Unknown]
  - Malaise [Recovered/Resolved]

NARRATIVE: CASE EVENT DATE: 201902
